FAERS Safety Report 6407018-8 (Version None)
Quarter: 2009Q4

REPORT INFORMATION
  Report Type: 
  Country: None (occurrence: None)
  Receive Date: 20091020
  Receipt Date: 20091007
  Transmission Date: 20100525
  Serious: Yes (Hospitalization, Other)
  Sender: FDA-Public Use
  Company Number: PHHY2009GB30951

PATIENT
  Sex: Male

DRUGS (9)
  1. CLOZARIL [Suspect]
     Indication: SCHIZOPHRENIA
     Dosage: 600 MG/DAY
     Dates: start: 19940201, end: 20090722
  2. WARFARIN SODIUM [Concomitant]
     Dosage: 4 MG DAILY
     Route: 048
  3. PROCYCLIDINE HYDROCHLORIDE 2MG TAB [Concomitant]
  4. OMEPRAZOLE [Concomitant]
     Dosage: 10 MG, UNK
     Route: 048
  5. ALBUTEROL [Concomitant]
     Dosage: 10 UG, UNK
  6. ZOPICLONE [Concomitant]
     Dosage: 3.75 MG DAILY
     Route: 048
  7. AMISULPRIDE [Concomitant]
     Dosage: 200 MG, QD
     Route: 048
  8. LOSARTAN POTASSIUM [Concomitant]
     Dosage: 25 MG, QD
     Route: 048
  9. IPRATROPIUM BROMIDE [Concomitant]
     Dosage: 20 UG, UNK

REACTIONS (11)
  - AGRANULOCYTOSIS [None]
  - CARDIAC DISORDER [None]
  - DRY MOUTH [None]
  - GENERAL PHYSICAL CONDITION ABNORMAL [None]
  - HYPOTENSION [None]
  - INSOMNIA [None]
  - NEUTROPHIL COUNT DECREASED [None]
  - OROPHARYNGEAL PAIN [None]
  - TRANSIENT ISCHAEMIC ATTACK [None]
  - TREMOR [None]
  - WHITE BLOOD CELL COUNT DECREASED [None]
